FAERS Safety Report 6203649-9 (Version None)
Quarter: 2009Q2

REPORT INFORMATION
  Report Type: 
  Country: None (occurrence: None)
  Receive Date: 20090518
  Receipt Date: 20090223
  Transmission Date: 20091009
  Serious: No
  Sender: FDA-Public Use
  Company Number: WAES 0902USA04075

PATIENT
  Sex: Female

DRUGS (2)
  1. JANUVIA [Suspect]
     Dosage: PO
     Route: 048
  2. BYETTA [Suspect]

REACTIONS (4)
  - ABDOMINAL PAIN UPPER [None]
  - LETHARGY [None]
  - MALAISE [None]
  - NAUSEA [None]
